FAERS Safety Report 6667761-2 (Version None)
Quarter: 2010Q2

REPORT INFORMATION
  Report Type: 
  Country: None (occurrence: None)
  Receive Date: 20100405
  Receipt Date: 20100218
  Transmission Date: 20101027
  Serious: Yes (Other)
  Sender: FDA-Public Use
  Company Number: US-GENZYME-FABR-1001232

PATIENT
  Sex: Male

DRUGS (3)
  1. FABRAZYME [Suspect]
     Indication: FABRY'S DISEASE
     Dosage: 50 MG, Q3W
     Route: 042
     Dates: start: 20091001
  2. FABRAZYME [Suspect]
     Dosage: 95 MG, Q2W
     Route: 042
     Dates: start: 20070701, end: 20090901
  3. FABRAZYME [Suspect]
     Dosage: 105 MG, Q2W
     Route: 042
     Dates: start: 20030801, end: 20090601

REACTIONS (2)
  - RENAL IMPAIRMENT [None]
  - TRANSIENT ISCHAEMIC ATTACK [None]
